FAERS Safety Report 16996482 (Version 1)
Quarter: 2019Q4

REPORT INFORMATION
  Report Type: Spontaneous
  Country: US (occurrence: US)
  Receive Date: 20191106
  Receipt Date: 20191106
  Transmission Date: 20200122
  Serious: Yes (Life-Threatening, Hospitalization)
  Sender: FDA-Public Use
  Company Number: US-BAXTER-2019BAX021844

PATIENT
  Age: 24 Year
  Sex: Male
  Weight: 160 kg

DRUGS (3)
  1. METOPROLOL TARTRATE INJECTION, USP [Suspect]
     Active Substance: METOPROLOL TARTRATE
     Indication: INTENTIONAL OVERDOSE
     Route: 065
  2. LISINOPRIL. [Suspect]
     Active Substance: LISINOPRIL
     Indication: INTENTIONAL OVERDOSE
     Route: 065
  3. AMLODIPINE [Suspect]
     Active Substance: AMLODIPINE BESYLATE
     Indication: INTENTIONAL OVERDOSE
     Dosage: 40 TABLETS, UNKNOWN DOSE
     Route: 048

REACTIONS (3)
  - Bradycardia [Recovered/Resolved]
  - Intentional overdose [Unknown]
  - Hypotension [Recovered/Resolved]
